FAERS Safety Report 19453203 (Version 1)
Quarter: 2021Q2

REPORT INFORMATION
  Report Type: Spontaneous
  Country: BR (occurrence: BR)
  Receive Date: 20210623
  Receipt Date: 20210623
  Transmission Date: 20210717
  Serious: Yes (Hospitalization, Other)
  Sender: FDA-Public Use
  Company Number: BR-STRIDES ARCOLAB LIMITED-2021SP006659

PATIENT
  Age: 23 Year
  Sex: Male

DRUGS (12)
  1. ERTAPENEM. [Suspect]
     Active Substance: ERTAPENEM SODIUM
     Indication: COVID-19 PNEUMONIA
     Dosage: UNK
     Route: 065
  2. DAPTOMYCIN. [Suspect]
     Active Substance: DAPTOMYCIN
     Indication: COVID-19 PNEUMONIA
     Dosage: UNK
     Route: 065
  3. VANCOMYCIN [Suspect]
     Active Substance: VANCOMYCIN
     Indication: COVID-19 PNEUMONIA
     Dosage: UNK
     Route: 065
  4. DEXAMETHASONE. [Suspect]
     Active Substance: DEXAMETHASONE
     Indication: COVID-19
     Dosage: 6 MILLIGRAM
     Route: 065
  5. POLYMYXIN [Suspect]
     Active Substance: POLYMYXIN
     Indication: COVID-19 PNEUMONIA
     Dosage: UNK
     Route: 065
  6. TIGECYCLINE. [Suspect]
     Active Substance: TIGECYCLINE
     Indication: COVID-19 PNEUMONIA
     Dosage: UNK
     Route: 065
  7. CEFTRIAXONE. [Suspect]
     Active Substance: CEFTRIAXONE
     Indication: COVID-19 PNEUMONIA
     Dosage: UNK
     Route: 065
  8. AMIKACIN. [Suspect]
     Active Substance: AMIKACIN
     Indication: COVID-19 PNEUMONIA
     Dosage: UNK
     Route: 065
  9. LINEZOLID. [Suspect]
     Active Substance: LINEZOLID
     Indication: COVID-19 PNEUMONIA
     Dosage: UNK
     Route: 065
  10. MEROPENEM. [Suspect]
     Active Substance: MEROPENEM
     Indication: COVID-19 PNEUMONIA
     Dosage: UNK
     Route: 065
  11. PYRIDOSTIGMINE [Concomitant]
     Active Substance: PYRIDOSTIGMINE
     Indication: PRODUCT USED FOR UNKNOWN INDICATION
     Dosage: UNK
     Route: 065
  12. TAZOCIN [Suspect]
     Active Substance: PIPERACILLIN SODIUM\TAZOBACTAM SODIUM
     Indication: COVID-19 PNEUMONIA
     Dosage: UNK
     Route: 065

REACTIONS (2)
  - Off label use [Unknown]
  - Myasthenia gravis crisis [Recovered/Resolved]
